FAERS Safety Report 11613860 (Version 1)
Quarter: 2015Q4

REPORT INFORMATION
  Report Type: Spontaneous
  Country: US (occurrence: US)
  Receive Date: 20151008
  Receipt Date: 20151008
  Transmission Date: 20160304
  Serious: No
  Sender: FDA-Public Use
  Company Number: US-APOPHARMA USA, INC.-2015AP005303

PATIENT
  Sex: Female

DRUGS (1)
  1. FERRIPROX [Suspect]
     Active Substance: DEFERIPRONE

REACTIONS (1)
  - Inflammation [Recovering/Resolving]
